FAERS Safety Report 7481963-7 (Version None)
Quarter: 2011Q2

REPORT INFORMATION
  Report Type: 
  Country: None (occurrence: None)
  Receive Date: 20110516
  Receipt Date: 20110509
  Transmission Date: 20111010
  Serious: Yes (Other)
  Sender: FDA-Public Use
  Company Number: JP-MERCK-1103USA03014

PATIENT
  Age: 70 Year
  Sex: Male

DRUGS (4)
  1. AMARYL [Concomitant]
     Route: 065
     Dates: start: 20100618
  2. GLYCORAN [Concomitant]
     Route: 065
     Dates: start: 20080701
  3. JANUVIA [Suspect]
     Indication: TYPE 2 DIABETES MELLITUS
     Route: 048
     Dates: start: 20100618
  4. AMARYL [Concomitant]
     Route: 065
     Dates: end: 20100617

REACTIONS (1)
  - PROSTATE CANCER [None]
